FAERS Safety Report 21634367 (Version 1)
Quarter: 2022Q4

REPORT INFORMATION
  Report Type: Spontaneous
  Country: US (occurrence: None)
  Receive Date: 20221123
  Receipt Date: 20221123
  Transmission Date: 20230113
  Serious: No
  Sender: FDA-Public Use
  Company Number: None

PATIENT
  Age: 34 Year
  Sex: Female
  Weight: 72 kg

DRUGS (2)
  1. MONISTAT 3 [Suspect]
     Active Substance: MICONAZOLE NITRATE
     Indication: Fungal infection
     Dosage: OTHER QUANTITY : 1 1;?FREQUENCY : AT BEDTIME;?
     Route: 067
     Dates: start: 20221122, end: 20221122
  2. VITAMINS [Concomitant]
     Active Substance: VITAMINS

REACTIONS (8)
  - Vulvovaginal burning sensation [None]
  - Application site pain [None]
  - Vulvovaginal pain [None]
  - Skin burning sensation [None]
  - Exposure via skin contact [None]
  - Accidental exposure to product [None]
  - Vulvovaginal erythema [None]
  - Vulvovaginal inflammation [None]

NARRATIVE: CASE EVENT DATE: 20221122
